FAERS Safety Report 7374829-4 (Version None)
Quarter: 2011Q1

REPORT INFORMATION
  Report Type: 
  Country: None (occurrence: None)
  Receive Date: 20110325
  Receipt Date: 20110321
  Transmission Date: 20110831
  Serious: Yes (Life-Threatening, Hospitalization, Other)
  Sender: FDA-Public Use
  Company Number: DE-ELI_LILLY_AND_COMPANY-DE201101006295

PATIENT
  Sex: Male

DRUGS (8)
  1. ABILIFY [Concomitant]
     Dosage: 20 MG, UNK
  2. BISOPROLOL COMP [Concomitant]
     Dosage: 5 G, UNK
  3. AMLODIPINE BESYLATE [Concomitant]
     Dosage: 5 MG, UNK
  4. ZYPADHERA [Suspect]
     Indication: SCHIZOAFFECTIVE DISORDER
     Dosage: 300 MG, EVERY 2ND WEEK
     Route: 030
     Dates: start: 20101001, end: 20110125
  5. BISOPROLOL COMP [Concomitant]
     Dosage: 12.5 MG, UNK
  6. ZYPREXA [Concomitant]
     Dosage: 5 MG, UNKNOWN
     Dates: start: 20110121
  7. ERGENYL [Concomitant]
     Dosage: 600 MG, UNK
  8. DELIX [Concomitant]
     Dosage: 5 MG, UNK

REACTIONS (15)
  - RESTLESSNESS [None]
  - HYPOMANIA [None]
  - TACHYCARDIA [None]
  - RESPIRATORY RATE INCREASED [None]
  - BLOOD GLUCOSE DECREASED [None]
  - UNRESPONSIVE TO STIMULI [None]
  - DELIRIUM [None]
  - CONVULSION [None]
  - DISORIENTATION [None]
  - ELECTROCARDIOGRAM QT PROLONGED [None]
  - SOMNOLENCE [None]
  - ENURESIS [None]
  - HYPERTENSION [None]
  - LOSS OF CONSCIOUSNESS [None]
  - SEROTONIN SYNDROME [None]
